FAERS Safety Report 7250520-X (Version None)
Quarter: 2011Q1

REPORT INFORMATION
  Report Type: 
  Country: None (occurrence: None)
  Receive Date: 20110128
  Receipt Date: 20110121
  Transmission Date: 20110831
  Serious: Yes (Death)
  Sender: FDA-Public Use
  Company Number: PHHY2011PE05856

PATIENT
  Sex: Female

DRUGS (1)
  1. RASILEZ HCT [Suspect]
     Dosage: 150/25
     Dates: start: 20100724

REACTIONS (2)
  - RENAL DISORDER [None]
  - CEREBROVASCULAR ACCIDENT [None]
